FAERS Safety Report 5368278-8 (Version None)
Quarter: 2007Q2

REPORT INFORMATION
  Report Type: 
  Country: None (occurrence: None)
  Receive Date: 20070619
  Receipt Date: 20070604
  Transmission Date: 20071010
  Serious: Yes (Other)
  Sender: FDA-Public Use
  Company Number: 2007RR-07920

PATIENT
  Age: 33 Year
  Sex: Female

DRUGS (10)
  1. RAMIPRIL [Suspect]
     Dosage: 5 MG, QD
  2. ORLISTAT CAPSULES (ORLISTAT) UNKNOWN [Suspect]
     Dosage: 360 MG, QD
  3. GLIMEPIRIDE (GLIMEPIRIDE) UNKNOWN [Suspect]
     Dosage: 2 MG, QD
  4. THIOCOLCHICOSIDE RANBAXY 4 MG COMPRIME (THIOCOLCHICOSIDE) UNKNOWN [Concomitant]
  5. SIMVASTATIN [Concomitant]
  6. METFORMIN HYDROCHLORIDE (METFORMIN) [Concomitant]
  7. CIPROFLOXACIN [Concomitant]
  8. ASPIRIN [Concomitant]
  9. METHYLDOPA [Concomitant]
  10. INSULIN (INSULIN) [Concomitant]

REACTIONS (3)
  - BLOOD GLUCOSE ABNORMAL [None]
  - BLOOD PRESSURE ABNORMAL [None]
  - DRUG EXPOSURE DURING PREGNANCY [None]
